FAERS Safety Report 23220426 (Version 1)
Quarter: 2023Q4

REPORT INFORMATION
  Report Type: Spontaneous
  Country: BR (occurrence: BR)
  Receive Date: 20231123
  Receipt Date: 20231123
  Transmission Date: 20240110
  Serious: Yes (Hospitalization, Other)
  Sender: FDA-Public Use
  Company Number: BR-CELLTRION INC.-2023BR022549

PATIENT

DRUGS (3)
  1. INFLIXIMAB [Suspect]
     Active Substance: INFLIXIMAB
     Indication: Colitis ulcerative
     Route: 065
  2. TOFACITINIB [Suspect]
     Active Substance: TOFACITINIB
     Indication: Colitis ulcerative
     Dosage: 10 MG, BID 10MG 12/12H INDUCTION INTO COMBINATION THERAPY 15 DAYS PRIOR TO CONSULTATION
  3. VEDOLIZUMAB [Suspect]
     Active Substance: VEDOLIZUMAB
     Indication: Colitis ulcerative
     Dosage: INDUCTION INTO COMBINATION THERAPY 15 DAYS PRIOR TO CONSULTATION
     Route: 042

REACTIONS (2)
  - Colitis ulcerative [Recovering/Resolving]
  - Treatment failure [Unknown]
